FAERS Safety Report 15653557 (Version 2)
Quarter: 2018Q4

REPORT INFORMATION
  Report Type: Report from Study
  Country: US (occurrence: US)
  Receive Date: 20181124
  Receipt Date: 20181206
  Transmission Date: 20190205
  Serious: No
  Sender: FDA-Public Use
  Company Number: PHEH2018US048685

PATIENT
  Sex: Male

DRUGS (2)
  1. ENTRESTO [Suspect]
     Active Substance: SACUBITRIL\VALSARTAN
     Indication: CARDIAC FAILURE
     Dosage: 1 DF (SACUBITRIL 24 MG AND VALSARTAN 26 MG), BID
     Route: 048
  2. ENTRESTO [Suspect]
     Active Substance: SACUBITRIL\VALSARTAN
     Dosage: 1 DF (SACUBITRIL 24 MG AND VALSARTAN 26 MG), QD
     Route: 048
     Dates: start: 20181109

REACTIONS (3)
  - Drug intolerance [Unknown]
  - Fatigue [Unknown]
  - Hypotension [Unknown]
